FAERS Safety Report 6966050-6 (Version None)
Quarter: 2010Q3

REPORT INFORMATION
  Report Type: 
  Country: None (occurrence: None)
  Receive Date: 20100903
  Receipt Date: 20100602
  Transmission Date: 20110219
  Serious: No
  Sender: FDA-Public Use
  Company Number: A0862429A

PATIENT
  Age: 50 Year
  Sex: Male

DRUGS (6)
  1. LAMICTAL [Suspect]
     Indication: DEPRESSION
     Dosage: 25MG PER DAY
     Route: 048
     Dates: start: 20100518
  2. VYVANSE [Concomitant]
  3. ABILIFY [Concomitant]
  4. BUPROPION HCL [Concomitant]
  5. MULTI-VITAMIN [Concomitant]
  6. FISH OIL [Concomitant]

REACTIONS (2)
  - BLISTER [None]
  - RASH [None]
